FAERS Safety Report 4889479-9 (Version None)
Quarter: 2006Q1

REPORT INFORMATION
  Report Type: 
  Country: None (occurrence: None)
  Receive Date: 20060124
  Receipt Date: 20051212
  Transmission Date: 20060701
  Serious: Yes (Other)
  Sender: FDA-Public Use
  Company Number: PHEH2005US13420

PATIENT
  Age: 78 Year
  Sex: Female

DRUGS (5)
  1. FAMVIR [Suspect]
     Indication: HERPES ZOSTER
     Dosage: 500 MG, ONCE/SINGLE
     Route: 048
     Dates: start: 20051207, end: 20051207
  2. FOSAMAX ONCE WEEKLY [Concomitant]
     Indication: OSTEOPOROSIS
     Dosage: 70 MG, QW
     Route: 048
  3. VITAMIN E [Concomitant]
     Dosage: 400 IU, QD
     Route: 048
  4. SELENIUM SULFIDE [Concomitant]
  5. ASPIRIN [Concomitant]

REACTIONS (3)
  - HEART RATE INCREASED [None]
  - MIDDLE INSOMNIA [None]
  - TREMOR [None]
